FAERS Safety Report 9433774 (Version 1)
Quarter: 2013Q3

REPORT INFORMATION
  Report Type: Spontaneous
  Country: US (occurrence: US)
  Receive Date: 20130731
  Receipt Date: 20130731
  Transmission Date: 20140515
  Serious: Yes (Other)
  Sender: FDA-Public Use
  Company Number: CHPA2013US012013

PATIENT
  Sex: Female

DRUGS (3)
  1. MAALOX ANTACID/ANTIGAS MAX LIQ [Suspect]
     Indication: ABDOMINAL DISTENSION
     Dosage: 1-2 TSP; PRN
     Route: 048
     Dates: end: 2012
  2. MAALOX ANTACID/ANTIGAS MAX LIQ [Suspect]
     Indication: ABDOMINAL DISCOMFORT
  3. MAALOX ANTACID/ANTIGAS MAX LIQ [Suspect]
     Indication: GASTROOESOPHAGEAL REFLUX DISEASE

REACTIONS (7)
  - Oesophagitis [Not Recovered/Not Resolved]
  - Gastrooesophageal reflux disease [Not Recovered/Not Resolved]
  - Abdominal distension [Not Recovered/Not Resolved]
  - Abdominal discomfort [Not Recovered/Not Resolved]
  - Condition aggravated [Not Recovered/Not Resolved]
  - Malaise [Not Recovered/Not Resolved]
  - Off label use [Not Recovered/Not Resolved]
